FAERS Safety Report 4773017-5 (Version None)
Quarter: 2005Q3

REPORT INFORMATION
  Report Type: 
  Country: None (occurrence: None)
  Receive Date: 20050916
  Receipt Date: 20050916
  Transmission Date: 20060218
  Serious: Yes (Death)
  Sender: FDA-Public Use
  Company Number: None

PATIENT
  Sex: Male
  Weight: 19 kg

DRUGS (17)
  1. CYCLOPHOSPHAMIDE [Suspect]
     Indication: B PRECURSOR TYPE ACUTE LEUKAEMIA
     Dosage: SEE IMAGE
     Dates: start: 20050707, end: 20050819
  2. MERCAPTOPURINE [Suspect]
     Dosage: SEE IMAGE
     Dates: start: 20050819, end: 20050829
  3. MERCAPTOPURINE [Suspect]
     Dosage: SEE IMAGE
     Dates: start: 20050707
  4. METHOTREXATE [Suspect]
     Dosage: SEE IMAGE
     Dates: start: 20050707, end: 20050714
  5. PEG-L-ASPARAGINASE {-H) [Suspect]
     Dosage: SEE IMAGE
     Dates: start: 20050721, end: 20050902
  6. PEG-L-ASPARAGINASE {-H) [Suspect]
     Dosage: SEE IMAGE
     Dates: start: 20050707
  7. VINCRISTINE SULFATE [Suspect]
     Dosage: SEE IMAGE
     Dates: start: 20050721, end: 20050902
  8. VINCRISTINE SULFATE [Suspect]
     Dosage: SEE IMAGE
     Dates: start: 20050707
  9. SYNTHROID [Concomitant]
  10. PERIDEX [Concomitant]
  11. BACTRIUM [Concomitant]
  12. ZANTAC [Concomitant]
  13. DIFLUCAN [Concomitant]
  14. TYLENOL [Concomitant]
  15. MAGIC MOUTH [Concomitant]
  16. ZOFRAN [Concomitant]
  17. TUMS [Concomitant]

REACTIONS (5)
  - CARDIO-RESPIRATORY ARREST [None]
  - INFECTION [None]
  - NEUTROPHIL COUNT DECREASED [None]
  - PNEUMONIA [None]
  - WOUND [None]
